FAERS Safety Report 13972892 (Version 1)
Quarter: 2017Q3

REPORT INFORMATION
  Report Type: Spontaneous
  Country: US (occurrence: US)
  Receive Date: 20170915
  Receipt Date: 20170915
  Transmission Date: 20171128
  Serious: Yes (Hospitalization, Other)
  Sender: FDA-Public Use
  Company Number: US-GLAXOSMITHKLINE-US2017141828

PATIENT
  Age: 83 Year
  Sex: Female

DRUGS (20)
  1. NITROFURANTOIN. [Concomitant]
     Active Substance: NITROFURANTOIN
  2. LEVOFLOXACIN. [Concomitant]
     Active Substance: LEVOFLOXACIN
  3. TIZANIDINE. [Concomitant]
     Active Substance: TIZANIDINE
  4. LANTUS [Concomitant]
     Active Substance: INSULIN GLARGINE
  5. SPIRIVA [Concomitant]
     Active Substance: TIOTROPIUM BROMIDE MONOHYDRATE
  6. TRAMADOL. [Concomitant]
     Active Substance: TRAMADOL
  7. CALCIUM CHLORIDE. [Concomitant]
     Active Substance: CALCIUM CHLORIDE
  8. GLYBURIDE. [Concomitant]
     Active Substance: GLYBURIDE
  9. HUMALOG [Concomitant]
     Active Substance: INSULIN LISPRO
  10. TRAZODONE [Concomitant]
     Active Substance: TRAZODONE HYDROCHLORIDE
  11. TRIAMCINOLONE [Concomitant]
     Active Substance: TRIAMCINOLONE
  12. ALBUTEROL SULFATE. [Concomitant]
     Active Substance: ALBUTEROL SULFATE
  13. LEVAQUIN [Concomitant]
     Active Substance: LEVOFLOXACIN
  14. LEXAPRO [Concomitant]
     Active Substance: ESCITALOPRAM OXALATE
  15. TYLENOL WITH CODEINE [Concomitant]
     Active Substance: ACETAMINOPHEN\CODEINE PHOSPHATE
  16. BUPROPION SR [Concomitant]
     Active Substance: BUPROPION HYDROCHLORIDE
  17. SYNTHROID [Concomitant]
     Active Substance: LEVOTHYROXINE SODIUM
  18. INCRUSE ELLIPTA [Suspect]
     Active Substance: UMECLIDINIUM BROMIDE
     Indication: CHRONIC OBSTRUCTIVE PULMONARY DISEASE
     Dosage: 1 PUFF(S), UNK
     Route: 055
     Dates: start: 2017
  19. LOSARTAN. [Concomitant]
     Active Substance: LOSARTAN
  20. SPIRONOLACTONE. [Concomitant]
     Active Substance: SPIRONOLACTONE

REACTIONS (14)
  - Blood urine present [Recovered/Resolved]
  - Underdose [Unknown]
  - Urinary tract infection [Recovering/Resolving]
  - Malaise [Unknown]
  - Urine abnormality [Unknown]
  - Escherichia infection [Recovered/Resolved]
  - Haemorrhage urinary tract [Recovered/Resolved]
  - Pain [Unknown]
  - Product use issue [Unknown]
  - Platelet count decreased [Unknown]
  - Staphylococcal infection [Recovered/Resolved]
  - Hepatic cirrhosis [Unknown]
  - Nephrolithiasis [Unknown]
  - Catheter placement [Unknown]

NARRATIVE: CASE EVENT DATE: 20170712
